FAERS Safety Report 8299537-7 (Version None)
Quarter: 2012Q2

REPORT INFORMATION
  Report Type: 
  Country: None (occurrence: None)
  Receive Date: 20120419
  Receipt Date: 20120403
  Transmission Date: 20120825
  Serious: Yes (Other)
  Sender: FDA-Public Use
  Company Number: CHPA2012US008894

PATIENT
  Age: 59 Year
  Sex: Male

DRUGS (9)
  1. PROPRANOLOL [Concomitant]
     Dosage: UNK, UNK
  2. MELOXICAM [Concomitant]
     Dosage: UNK, UNK
  3. VALIUM [Concomitant]
     Dosage: UNK, UNK
  4. GABAPENTIN [Concomitant]
     Dosage: UNK, UNK
  5. 4 WAY MENTHOLATED NASAL SPRAY [Suspect]
     Indication: NASAL CONGESTION
     Dosage: 2-4 BOTTLES PER WEEK
     Route: 045
     Dates: start: 19860101, end: 20120101
  6. ACETYLSALICYLIC ACID SRT [Concomitant]
     Dosage: UNK, UNK
  7. PERCOCET [Concomitant]
     Dosage: UNK, UNK
  8. NASAL PREPARATIONS [Concomitant]
     Dosage: UNK, UNK
  9. QUINAPRIL [Concomitant]
     Dosage: UNK, UNK

REACTIONS (2)
  - DIABETES MELLITUS [None]
  - OVERDOSE [None]
